FAERS Safety Report 5405806-8 (Version None)
Quarter: 2007Q3

REPORT INFORMATION
  Report Type: 
  Country: None (occurrence: None)
  Receive Date: 20070802
  Receipt Date: 20070725
  Transmission Date: 20080115
  Serious: Yes (Death, Hospitalization)
  Sender: FDA-Public Use
  Company Number: 000#5#2003-00417

PATIENT
  Age: 61 Year
  Sex: Male
  Weight: 73.4827 kg

DRUGS (14)
  1. ROTIGOTINE (DOSE UNKNOWN), PATCH (SILICONE) (ROTIGOTINE) [Suspect]
     Dosage: 12MG/24H, 1 IN 1 D, TRANSDERMAL
     Route: 062
     Dates: start: 20030219, end: 20070522
  2. ROTIGOTINE-TRIAL [Concomitant]
  3. CARBIDOPA AND LEVODOPA [Concomitant]
  4. ENTACAPONE [Concomitant]
  5. SELEGILINE HCL [Concomitant]
  6. DOXEPION [Concomitant]
  7. CITALOPRAM HYDROBROMIDE [Concomitant]
  8. DOXAZOSIN MESYLATE [Concomitant]
  9. TESTOSTERONE [Concomitant]
  10. RANITIDINE HYDROCHLORIDE [Concomitant]
  11. SENNA FRUIT [Concomitant]
  12. BISACODYL [Concomitant]
  13. FAMOTIDINE [Concomitant]
  14. COMTAN [Concomitant]

REACTIONS (10)
  - BLOOD CALCIUM DECREASED [None]
  - BLOOD CHLORIDE INCREASED [None]
  - HAEMATOCRIT DECREASED [None]
  - HAEMOGLOBIN DECREASED [None]
  - LIMB INJURY [None]
  - MYOCARDIAL INFARCTION [None]
  - OESOPHAGEAL ULCER [None]
  - PROSTATE CANCER [None]
  - RED BLOOD CELL COUNT DECREASED [None]
  - SKIN LACERATION [None]
